FAERS Safety Report 11803790 (Version 3)
Quarter: 2016Q1

REPORT INFORMATION
  Report Type: Report from Study
  Country: KR (occurrence: KR)
  Receive Date: 20151204
  Receipt Date: 20160125
  Transmission Date: 20160525
  Serious: Yes (Hospitalization)
  Sender: FDA-Public Use
  Company Number: KR-EISAI MEDICAL RESEARCH-EC-2015-011145

PATIENT
  Age: 71 Year
  Sex: Male
  Weight: 48.3 kg

DRUGS (24)
  1. LENVATINIB [Suspect]
     Active Substance: LENVATINIB
     Route: 048
     Dates: start: 20151128, end: 20151228
  2. MUCOSTEN CAP [Concomitant]
  3. CODEINE PHOSPHATE [Concomitant]
     Active Substance: CODEINE PHOSPHATE
  4. ROISOL [Concomitant]
  5. TAZOPERAN [Concomitant]
  6. NORVASC [Concomitant]
     Active Substance: AMLODIPINE BESYLATE
  7. COZARTAN [Concomitant]
  8. POTASSIUM CHLORIDE. [Concomitant]
     Active Substance: POTASSIUM CHLORIDE
  9. RESOLOR [Concomitant]
     Active Substance: PRUCALOPRIDE SUCCINATE
  10. LOPERAMIDE [Concomitant]
     Active Substance: LOPERAMIDE
  11. FEROBA-YOU [Concomitant]
  12. AVENTRO [Concomitant]
  13. DEXTROSE AND NA K2 [Concomitant]
  14. WINUF PERI [Concomitant]
  15. IR-CODON [Concomitant]
  16. LENVATINIB [Suspect]
     Active Substance: LENVATINIB
     Route: 048
     Dates: start: 20151118, end: 20151127
  17. SYNTHROID [Concomitant]
     Active Substance: LEVOTHYROXINE SODIUM
  18. LEVOFLOXACIN. [Concomitant]
     Active Substance: LEVOFLOXACIN
  19. AMBROCOL [Concomitant]
     Active Substance: AMBROXOL HYDROCHLORIDE\CLENBUTEROL
  20. MUCOMYST [Concomitant]
     Active Substance: ACETYLCYSTEINE
  21. LENVATINIB [Suspect]
     Active Substance: LENVATINIB
     Indication: PAPILLARY THYROID CANCER
     Route: 048
     Dates: start: 20150911, end: 20151009
  22. MUCO-SOL [Concomitant]
  23. DUPHALAC-EAZY [Concomitant]
  24. NORMAL SALINE [Concomitant]
     Active Substance: SODIUM CHLORIDE

REACTIONS (3)
  - Cholecystitis [Recovered/Resolved]
  - Flank pain [Recovered/Resolved]
  - Pneumonia [Recovered/Resolved]

NARRATIVE: CASE EVENT DATE: 20151009
